FAERS Safety Report 12424401 (Version 1)
Quarter: 2016Q2

REPORT INFORMATION
  Report Type: Spontaneous
  Country: US (occurrence: US)
  Receive Date: 20160601
  Receipt Date: 20160601
  Transmission Date: 20160815
  Serious: No
  Sender: FDA-Public Use
  Company Number: US-NOVEN PHARMACEUTICALS, INC.-US2015001324

PATIENT
  Age: 6 Year
  Sex: Male

DRUGS (2)
  1. DAYTRANA [Suspect]
     Active Substance: METHYLPHENIDATE
     Dosage: 15 MG, UNKNOWN
     Route: 062
     Dates: start: 2015, end: 201511
  2. DAYTRANA [Suspect]
     Active Substance: METHYLPHENIDATE
     Indication: ATTENTION DEFICIT/HYPERACTIVITY DISORDER
     Dosage: 10 MG, UNKNOWN
     Route: 062
     Dates: start: 201510, end: 2015

REACTIONS (6)
  - Drug administration error [Unknown]
  - Application site erythema [Recovering/Resolving]
  - Product quality issue [Unknown]
  - Application site swelling [Unknown]
  - Product adhesion issue [Unknown]
  - Application site urticaria [Unknown]

NARRATIVE: CASE EVENT DATE: 201510
